FAERS Safety Report 19621480 (Version 1)
Quarter: 2021Q3

REPORT INFORMATION
  Report Type: Spontaneous
  Country: US (occurrence: US)
  Receive Date: 20210728
  Receipt Date: 20210728
  Transmission Date: 20211014
  Serious: Yes (Other)
  Sender: FDA-Public Use
  Company Number: US-NOVEN PHARMACEUTICALS, INC.-2021-NOV-US003406

PATIENT
  Sex: Female

DRUGS (1)
  1. COMBIPATCH [Suspect]
     Active Substance: ESTRADIOL\NORETHINDRONE ACETATE
     Indication: PRODUCT USED FOR UNKNOWN INDICATION
     Dosage: 0.05/0.14MG, UNK
     Route: 062

REACTIONS (4)
  - No adverse event [Unknown]
  - Device issue [Recovered/Resolved]
  - Product adhesion issue [Recovered/Resolved]
  - Exposure via direct contact [Unknown]

NARRATIVE: CASE EVENT DATE: 20210510
